FAERS Safety Report 14323217 (Version 3)
Quarter: 2018Q3

REPORT INFORMATION
  Report Type: Spontaneous
  Country: DE (occurrence: DE)
  Receive Date: 20171226
  Receipt Date: 20180726
  Transmission Date: 20181010
  Serious: Yes (Death, Hospitalization, Other)
  Sender: FDA-Public Use
  Company Number: DE-APOTEX-2017AP023647

PATIENT
  Age: 78 Year
  Sex: Male

DRUGS (16)
  1. DEXTROMETHORPHAN HYDROBROMIDE. [Suspect]
     Active Substance: DEXTROMETHORPHAN HYDROBROMIDE
     Dosage: TWO DIVIDED DOSES
     Route: 065
  2. LORAZEPAM. [Suspect]
     Active Substance: LORAZEPAM
     Dosage: UNK
     Route: 065
  3. QUETIAPINE                         /01270902/ [Suspect]
     Active Substance: QUETIAPINE FUMARATE
     Indication: DEMENTIA WITH LEWY BODIES
     Dosage: UNK
     Route: 065
  4. DRONABINOL. [Suspect]
     Active Substance: DRONABINOL
     Indication: DELIRIUM
     Dosage: 2.5 MG, QD
     Route: 065
  5. DRONABINOL. [Suspect]
     Active Substance: DRONABINOL
     Dosage: 15 MG, QD
     Route: 065
  6. PAROXETINE. [Suspect]
     Active Substance: PAROXETINE
     Indication: DELIRIUM
     Dosage: 10 MG, UNK
     Route: 065
  7. AMPICILLIN AND SULBACTAM [Suspect]
     Active Substance: AMPICILLIN SODIUM\SULBACTAM SODIUM
     Indication: PNEUMONIA
     Dosage: UNK
     Route: 016
  8. RIVASTIGMINE. [Concomitant]
     Active Substance: RIVASTIGMINE
     Indication: PRODUCT USED FOR UNKNOWN INDICATION
     Dosage: UNK
     Route: 065
  9. DRONABINOL. [Suspect]
     Active Substance: DRONABINOL
     Dosage: UNK
     Route: 065
  10. FORMOTEROL FUMARATE [Suspect]
     Active Substance: FORMOTEROL FUMARATE
     Indication: PNEUMONIA
     Dosage: UNK
     Route: 065
  11. LORAZEPAM. [Suspect]
     Active Substance: LORAZEPAM
     Indication: DELIRIUM
     Route: 065
  12. QUETIAPINE                         /01270902/ [Suspect]
     Active Substance: QUETIAPINE FUMARATE
     Indication: DELIRIUM
     Dosage: 150 MG, QD
     Route: 065
     Dates: start: 2016
  13. SPIRIVA [Suspect]
     Active Substance: TIOTROPIUM BROMIDE MONOHYDRATE
     Dosage: UNK, 365 DAYS
     Route: 065
     Dates: start: 20160101
  14. DEXTROMETHORPHAN HYDROBROMIDE. [Suspect]
     Active Substance: DEXTROMETHORPHAN HYDROBROMIDE
     Indication: DELIRIUM
     Dosage: 24 MG, UNK
     Route: 065
  15. FLUPENTIXOL [Suspect]
     Active Substance: FLUPENTIXOL
     Route: 065
  16. DONEPEZIL                          /01318902/ [Suspect]
     Active Substance: DONEPEZIL
     Route: 065

REACTIONS (12)
  - Rebound effect [Unknown]
  - Sleep disorder [Recovering/Resolving]
  - Delirium [Recovering/Resolving]
  - Condition aggravated [Recovering/Resolving]
  - Paradoxical drug reaction [Unknown]
  - Paranoia [Recovering/Resolving]
  - Withdrawal syndrome [Recovering/Resolving]
  - Fatigue [Unknown]
  - Completed suicide [Fatal]
  - Hangover [Recovering/Resolving]
  - Aggression [Recovering/Resolving]
  - Off label use [Unknown]

NARRATIVE: CASE EVENT DATE: 2016
